FAERS Safety Report 5229273-2 (Version None)
Quarter: 2007Q1

REPORT INFORMATION
  Report Type: 
  Country: None (occurrence: None)
  Receive Date: 20061201
  Receipt Date: 20060803
  Transmission Date: 20070707
  Serious: No
  Sender: FDA-Public Use
  Company Number: US200608001559

PATIENT
  Age: 56 Year
  Sex: Female

DRUGS (3)
  1. CYMBALTA [Suspect]
     Dosage: 20 MG, ORAL
     Route: 048
     Dates: start: 20060101, end: 20060101
  2. PROZAC [Concomitant]
  3. EFFEXOR [Concomitant]

REACTIONS (6)
  - ANXIETY [None]
  - BRADYPHRENIA [None]
  - EYE PAIN [None]
  - FATIGUE [None]
  - FEELING ABNORMAL [None]
  - OCULAR HYPERAEMIA [None]
